FAERS Safety Report 16039970 (Version 1)
Quarter: 2019Q1

REPORT INFORMATION
  Report Type: Spontaneous
  Country: JP (occurrence: JP)
  Receive Date: 20190306
  Receipt Date: 20190306
  Transmission Date: 20190418
  Serious: Yes (Hospitalization, Other)
  Sender: FDA-Public Use
  Company Number: JP-GLAXOSMITHKLINE-JP2019JPN036298

PATIENT
  Sex: Male

DRUGS (1)
  1. VOLTAREN EX TAPE [Suspect]
     Active Substance: DICLOFENAC SODIUM
     Dosage: UNK
     Route: 061

REACTIONS (2)
  - Malaise [Recovered/Resolved]
  - Bone marrow failure [Recovered/Resolved]
